FAERS Safety Report 8797094 (Version 1)
Quarter: 2012Q4

REPORT INFORMATION
  Report Type: 
  Country: JP (occurrence: JP)
  Receive Date: 20120919
  Receipt Date: 20120919
  Transmission Date: 20130627
  Serious: Yes (Other)
  Sender: FDA-Public Use
  Company Number: JP-GLAXOSMITHKLINE-B0830553A

PATIENT
  Age: 59 Year
  Sex: Male

DRUGS (1)
  1. VALTREX [Suspect]
     Indication: ORAL HERPES
     Dosage: 500MG Twice per day
     Route: 048
     Dates: start: 20120910, end: 20120910

REACTIONS (2)
  - Stevens-Johnson syndrome [Unknown]
  - Ocular hyperaemia [Unknown]
